FAERS Safety Report 10502718 (Version 2)
Quarter: 2015Q1

REPORT INFORMATION
  Report Type: Spontaneous
  Country: US (occurrence: US)
  Receive Date: 20141007
  Receipt Date: 20150123
  Transmission Date: 20150720
  Serious: Yes (Hospitalization, Other)
  Sender: FDA-Public Use
  Company Number: US-BAYER-2014-147889

PATIENT
  Age: 22 Year
  Sex: Female
  Weight: 54.42 kg

DRUGS (2)
  1. MIRENA [Suspect]
     Active Substance: LEVONORGESTREL
     Indication: CONTRACEPTION
     Dosage: 20 MCG/DL, CONT
     Route: 015
     Dates: start: 20090424, end: 20130312
  2. XANAX [Concomitant]
     Active Substance: ALPRAZOLAM

REACTIONS (15)
  - Injury [None]
  - Vomiting [None]
  - Device dislocation [None]
  - Procedural pain [None]
  - Abdominal pain [None]
  - Infertility female [None]
  - Uterine perforation [None]
  - Depression [None]
  - Anxiety [None]
  - Device dislocation [None]
  - Nausea [None]
  - Pregnancy with contraceptive device [None]
  - Suicidal ideation [None]
  - Device issue [None]
  - Drug ineffective [None]

NARRATIVE: CASE EVENT DATE: 2009
